FAERS Safety Report 20855617 (Version 4)
Quarter: 2022Q2

REPORT INFORMATION
  Report Type: Spontaneous
  Country: IT (occurrence: IT)
  Receive Date: 20220520
  Receipt Date: 20220603
  Transmission Date: 20220720
  Serious: Yes (Other)
  Sender: FDA-Public Use
  Company Number: IT-ROCHE-3084438

PATIENT
  Age: 29 Year
  Sex: Female

DRUGS (10)
  1. PEMETREXED [Suspect]
     Active Substance: PEMETREXED
     Indication: Lung adenocarcinoma
     Dosage: 500 MILLIGRAM/SQ. METER, Q3W (FIRST-LINE TREATMENT)
     Route: 065
  2. PEMETREXED [Suspect]
     Active Substance: PEMETREXED
     Indication: Adenocarcinoma metastatic
     Dosage: 500 MILLIGRAM/SQ. METER, Q3W(EVERY 3 WEEKS)
     Route: 065
  3. CISPLATIN [Suspect]
     Active Substance: CISPLATIN
     Indication: Lung adenocarcinoma
     Dosage: 75 MILLIGRAM/SQ. METER, Q3W (FIRST-LINE TREATMENT)
     Route: 065
  4. CISPLATIN [Suspect]
     Active Substance: CISPLATIN
     Indication: Adenocarcinoma metastatic
     Dosage: 75 MILLIGRAM/SQ. METER, Q3W(EVERY 3 WEEKS)
     Route: 065
  5. ERLOTINIB [Suspect]
     Active Substance: ERLOTINIB
     Indication: Lung adenocarcinoma
     Dosage: UNK
     Route: 048
  6. ERLOTINIB [Suspect]
     Active Substance: ERLOTINIB
     Indication: Adenocarcinoma metastatic
     Dosage: UNK
     Route: 048
  7. ERLOTINIB [Suspect]
     Active Substance: ERLOTINIB
     Dosage: 150 MILLIGRAM, QD
     Route: 048
  8. ERLOTINIB [Suspect]
     Active Substance: ERLOTINIB
     Dosage: 100 MILLIGRAM, QD
     Route: 048
  9. PEMBROLIZUMAB [Suspect]
     Active Substance: PEMBROLIZUMAB
     Indication: Lung adenocarcinoma
     Dosage: 200 MILLIGRAM, Q3W
     Route: 065
  10. PEMBROLIZUMAB [Suspect]
     Active Substance: PEMBROLIZUMAB
     Indication: Adenocarcinoma metastatic
     Dosage: 200 MILLIGRAM, Q3W(EVERY 3 WEEKS)
     Route: 065

REACTIONS (4)
  - Hyperbilirubinaemia [Unknown]
  - Tubulointerstitial nephritis [Unknown]
  - Nephropathy [Unknown]
  - Therapy partial responder [Unknown]
